FAERS Safety Report 4459302-5 (Version None)
Quarter: 2004Q3

REPORT INFORMATION
  Report Type: 
  Country: None (occurrence: None)
  Receive Date: 20040927
  Receipt Date: 20040915
  Transmission Date: 20050211
  Serious: Yes (Death, Life-Threatening, Other)
  Sender: FDA-Public Use
  Company Number: US-BRISTOL-MYERS SQUIBB COMPANY-12702635

PATIENT
  Age: 22 Year
  Sex: Female
  Weight: 43 kg

DRUGS (1)
  1. TRAZODONE HCL [Suspect]
     Indication: DEPRESSION
     Route: 048

REACTIONS (9)
  - DEATH [None]
  - DRUG LEVEL INCREASED [None]
  - DYSPNOEA [None]
  - INJURY ASPHYXIATION [None]
  - JAUNDICE [None]
  - PNEUMONIA [None]
  - RESPIRATORY DISORDER [None]
  - SWELLING FACE [None]
  - URTICARIA [None]
